FAERS Safety Report 19574152 (Version 5)
Quarter: 2023Q2

REPORT INFORMATION
  Report Type: Other
  Country: BR (occurrence: None)
  Receive Date: 20210719
  Receipt Date: 20230626
  Transmission Date: 20230722
  Serious: Yes (Hospitalization)
  Sender: FDA-Public Use
  Company Number: BR-ROCHE-2871702

PATIENT
  Age: 48 Year
  Sex: Female
  Weight: 57 kg

DRUGS (15)
  1. OCRELIZUMAB [Suspect]
     Active Substance: OCRELIZUMAB
     Indication: Primary progressive multiple sclerosis
     Dosage: ON 06/JAN/2021, SHE RECEIVED MOST RECENT DOSE OF STUDY DRUG ADMIN PRIOR AE/SAE 300 MG
     Route: 042
     Dates: start: 20201223
  2. DALFAMPRIDINE [Concomitant]
     Active Substance: DALFAMPRIDINE
     Dosage: SUBSEQUENT DOSE RECEIVED ON 11/MAY/2019
     Route: 048
     Dates: start: 2018
  3. BACLOFEN [Concomitant]
     Active Substance: BACLOFEN
     Route: 048
     Dates: start: 2015
  4. METHYLPHENIDATE [Concomitant]
     Active Substance: METHYLPHENIDATE
     Route: 048
     Dates: start: 2020
  5. TRAZODONE [Concomitant]
     Active Substance: TRAZODONE HYDROCHLORIDE
     Route: 048
     Dates: start: 20201202
  6. VENLAFAXINE [Concomitant]
     Active Substance: VENLAFAXINE HYDROCHLORIDE
     Route: 048
     Dates: start: 2014
  7. CISPLATIN [Concomitant]
     Active Substance: CISPLATIN
     Dates: start: 20210329, end: 20210503
  8. TRAMADOL [Concomitant]
     Active Substance: TRAMADOL
  9. VITAMIN C [Concomitant]
     Active Substance: ASCORBIC ACID
     Dates: start: 202003
  10. BIPERIDEN [Concomitant]
     Active Substance: BIPERIDEN
     Route: 065
     Dates: start: 2021
  11. QUETIAPINE [Concomitant]
     Active Substance: QUETIAPINE
     Dates: start: 2021
  12. SOLIFENACIN [Concomitant]
     Active Substance: SOLIFENACIN
     Route: 065
     Dates: start: 2021
  13. BUSPIRONE [Concomitant]
     Active Substance: BUSPIRONE HYDROCHLORIDE
     Route: 065
  14. PANTOPRAZOLE [Concomitant]
     Active Substance: PANTOPRAZOLE
     Dates: start: 2021
  15. VITAMIN B12 [Concomitant]
     Active Substance: CYANOCOBALAMIN
     Indication: Prophylaxis
     Route: 065
     Dates: start: 2021

REACTIONS (2)
  - Deep vein thrombosis [Recovered/Resolved]
  - Wound infection [Recovered/Resolved]

NARRATIVE: CASE EVENT DATE: 20210515
